FAERS Safety Report 13376221 (Version 3)
Quarter: 2018Q1

REPORT INFORMATION
  Report Type: Spontaneous
  Country: IT (occurrence: IT)
  Receive Date: 20170328
  Receipt Date: 20180301
  Transmission Date: 20180508
  Serious: Yes (Other)
  Sender: FDA-Public Use
  Company Number: IT-EMD SERONO-8150025

PATIENT
  Age: 41 Year
  Sex: Male

DRUGS (1)
  1. REBIF [Suspect]
     Active Substance: INTERFERON BETA-1A
     Indication: MULTIPLE SCLEROSIS
     Dosage: PRE FILLED SYRINGE
     Dates: start: 20081015, end: 20090115

REACTIONS (1)
  - Hypertransaminasaemia [Recovered/Resolved]

NARRATIVE: CASE EVENT DATE: 20090115
